FAERS Safety Report 9332910 (Version 1)
Quarter: 2013Q2

REPORT INFORMATION
  Report Type: Spontaneous
  Country: US (occurrence: US)
  Receive Date: 20130606
  Receipt Date: 20130606
  Transmission Date: 20140414
  Serious: Yes (Hospitalization, Other)
  Sender: FDA-Public Use
  Company Number: US-TARO PHARMACEUTICALS U.S.A., INC-2013SUN00681

PATIENT
  Age: 14 Year
  Sex: Male

DRUGS (6)
  1. KETOCONAZOLE [Suspect]
     Indication: OFF LABEL USE
     Dosage: UNK
     Route: 065
  2. TACROLIMUS [Interacting]
     Indication: RENAL TRANSPLANT
     Dosage: 1.06 MG/DAY,UNK, UNK
     Route: 065
  3. TACROLIMUS [Interacting]
     Indication: LIVER TRANSPLANT
     Dosage: 4 MG/DAY UNK, UNK
  4. TACROLIMUS [Interacting]
     Dosage: 2.29 MG/DAY, UNK, UNK
  5. RIFAMPICIN [Interacting]
     Indication: LATENT TUBERCULOSIS
     Dosage: 10 MG/KG, UNK
     Route: 065
  6. VANCOMYCIN [Concomitant]

REACTIONS (3)
  - Pneumonia [Recovered/Resolved]
  - Drug interaction [Unknown]
  - Electrocardiogram QT prolonged [Unknown]
